FAERS Safety Report 8912113 (Version 2)
Quarter: 2013Q1

REPORT INFORMATION
  Report Type: Spontaneous
  Country: US (occurrence: None)
  Receive Date: 20121113
  Receipt Date: 20121130
  Transmission Date: 20140127
  Serious: Yes (Hospitalization)
  Sender: FDA-Public Use
  Company Number: AMAG201203135

PATIENT
  Age: 73 Year
  Sex: Female
  Weight: 86.2 kg

DRUGS (20)
  1. FERAHEME [Suspect]
     Indication: IRON DEFICIENCY ANAEMIA
     Dosage: SINGLE
     Route: 042
     Dates: start: 201210, end: 201210
  2. DUONEB (IPRATROPIUM BROMIDE. SALBUTAMOL SULFATE) [Concomitant]
  3. VENTOLIN (SALBUTAMOL SULFATE) [Concomitant]
  4. PANTHENOL (DEXPANTHENOL) [Concomitant]
  5. PHENERGAN (PROMETHAZINE) [Concomitant]
  6. CLINDAMYCIN (CLINDAMYCIN PHOSPHATE) [Concomitant]
  7. FENTANYL (FENTANYL CITRATE) [Concomitant]
  8. CARAFATE (SUCRALFATE) [Concomitant]
  9. PERCOCET [Concomitant]
  10. VESICARE (SOLIFENACIN SUCCINATE) ) [Concomitant]
  11. DOXYCYCLINE (DOXYCYCLINE HYDROCHLORIDE) [Concomitant]
  12. SYNTHROID (LEVOTHYROXINE SODIUM) [Concomitant]
  13. PROTONIX (PANTOPRAZOLE SODIUM SESQUIHYDRATE) [Concomitant]
  14. ATIVAN (LORAZEPAM) [Concomitant]
  15. PRISTIQ (DESVENLAFAXINE SUCCINATE) [Concomitant]
  16. ASPIRIN (ACETYLSALICYLIC ACID) [Concomitant]
  17. CLARITIN (LORATADINE) [Concomitant]
  18. LOVENOX (ENOXAPARIN SODIUM) [Concomitant]
  19. FLONASE (FLUTICASONE PROPIONATE) [Concomitant]
  20. INTRAVENOUS FLUIDS (INTRAVENOUS FLUIDS) [Concomitant]

REACTIONS (4)
  - Haemoglobin decreased [None]
  - Dyspnoea [None]
  - Hypercapnia [None]
  - Renal failure acute [None]
